FAERS Safety Report 23944510 (Version 2)
Quarter: 2024Q3

REPORT INFORMATION
  Report Type: Spontaneous
  Country: PT (occurrence: PT)
  Receive Date: 20240606
  Receipt Date: 20240709
  Transmission Date: 20241017
  Serious: Yes (Other)
  Sender: AUROBINDO
  Company Number: PT-ALAT_HILIT-167

PATIENT
  Age: 77 Year
  Sex: Male

DRUGS (2)
  1. RIVASTIGMINE [Suspect]
     Active Substance: RIVASTIGMINE
     Indication: Parkinson^s disease
     Dosage: 4.5 MILLIGRAM, ONCE A DAY
     Route: 065
  2. CARBIDOPA\LEVODOPA [Suspect]
     Active Substance: CARBIDOPA\LEVODOPA
     Indication: Parkinson^s disease
     Dosage: 3 DOSAGE FORM, ONCE A DAY (250/25 MG)
     Route: 048

REACTIONS (2)
  - Intestinal pseudo-obstruction [Recovered/Resolved]
  - Constipation [Recovered/Resolved]
